FAERS Safety Report 23933473 (Version 5)
Quarter: 2025Q2

REPORT INFORMATION
  Report Type: Spontaneous
  Country: US (occurrence: US)
  Receive Date: 20240603
  Receipt Date: 20250625
  Transmission Date: 20250716
  Serious: No
  Sender: PFIZER
  Company Number: US-PFIZER INC-202400181621

PATIENT
  Age: 3 Year
  Sex: Female
  Weight: 14.5 kg

DRUGS (11)
  1. GENOTROPIN [Suspect]
     Active Substance: SOMATROPIN
     Indication: Growth failure
     Dosage: 0.6 MG, DAILY
     Route: 058
     Dates: start: 202201, end: 20241030
  2. GENOTROPIN [Suspect]
     Active Substance: SOMATROPIN
     Indication: End stage renal disease
     Dosage: 0.7 MG, DAILY
     Route: 058
     Dates: start: 20240229, end: 20241030
  3. CALCITRIOL [Concomitant]
     Active Substance: CALCITRIOL
     Indication: Hyperparathyroidism secondary
  4. CALCITRIOL [Concomitant]
     Active Substance: CALCITRIOL
     Indication: End stage renal disease
  5. SENSIPAR [Concomitant]
     Active Substance: CINACALCET HYDROCHLORIDE
     Indication: Hyperparathyroidism secondary
  6. SENSIPAR [Concomitant]
     Active Substance: CINACALCET HYDROCHLORIDE
     Indication: End stage renal disease
  7. ARANESP [Concomitant]
     Active Substance: DARBEPOETIN ALFA
     Indication: Anaemia
     Dosage: 25 UG, WEEKLY
  8. ARANESP [Concomitant]
     Active Substance: DARBEPOETIN ALFA
     Indication: End stage renal disease
  9. FERROUS SULFATE [Concomitant]
     Active Substance: FERROUS SULFATE
     Indication: Anaemia
     Dosage: 75 MG, DAILY
  10. FERROUS SULFATE [Concomitant]
     Active Substance: FERROUS SULFATE
     Indication: End stage renal disease
  11. POTASSIUM CHLORIDE [Concomitant]
     Active Substance: POTASSIUM CHLORIDE
     Indication: Hypokalaemia
     Dosage: 3.33 MEQ, DAILY

REACTIONS (2)
  - Weight gain poor [Recovering/Resolving]
  - Off label use [Unknown]

NARRATIVE: CASE EVENT DATE: 20220101
